FAERS Safety Report 8063087-3 (Version None)
Quarter: 2012Q1

REPORT INFORMATION
  Report Type: 
  Country: None (occurrence: None)
  Receive Date: 20120123
  Receipt Date: 20120118
  Transmission Date: 20120608
  Serious: Yes (Hospitalization)
  Sender: FDA-Public Use
  Company Number: GB-PFIZER INC-2012015054

PATIENT
  Age: 38 Year
  Sex: Female

DRUGS (1)
  1. VARENICLINE TARTRATE [Suspect]
     Indication: SMOKING CESSATION THERAPY
     Dosage: 1 MG, ONCE DAILY

REACTIONS (6)
  - HEART RATE DECREASED [None]
  - ABDOMINAL PAIN [None]
  - MALAISE [None]
  - PALPITATIONS [None]
  - HYPOTENSION [None]
  - CROHN'S DISEASE [None]
